FAERS Safety Report 5290754-7 (Version None)
Quarter: 2007Q2

REPORT INFORMATION
  Report Type: 
  Country: None (occurrence: None)
  Receive Date: 20070405
  Receipt Date: 20070405
  Transmission Date: 20071010
  Serious: Yes (Hospitalization, Other)
  Sender: FDA-Public Use
  Company Number: None

PATIENT
  Age: 51 Year
  Sex: Female
  Weight: 53.5244 kg

DRUGS (1)
  1. SUMATRIPTAN SUCCINATE [Suspect]
     Indication: MIGRAINE
     Dosage: 1 TABLET   INITIAL HEADACE  PO  (DURATION: ONE TIME USE)
     Route: 048
     Dates: start: 20070318, end: 20070318

REACTIONS (1)
  - MYOCARDIAL INFARCTION [None]
